FAERS Safety Report 19462165 (Version 1)
Quarter: 2021Q2

REPORT INFORMATION
  Report Type: Spontaneous
  Country: US (occurrence: US)
  Receive Date: 20210625
  Receipt Date: 20210625
  Transmission Date: 20210717
  Serious: Yes (Other)
  Sender: FDA-Public Use
  Company Number: US-ASTELLAS-2021US018980

PATIENT
  Age: 72 Year
  Sex: Male

DRUGS (2)
  1. PADCEV [Suspect]
     Active Substance: ENFORTUMAB VEDOTIN-EJFV
     Indication: TRANSITIONAL CELL CARCINOMA
     Route: 042
     Dates: start: 201911
  2. PADCEV [Suspect]
     Active Substance: ENFORTUMAB VEDOTIN-EJFV
     Dosage: 0.75 MG/KG, CYCLIC (ON DAYS 1 AND 8 OF 21 DAYS CYCLE)
     Route: 042
     Dates: start: 20210407

REACTIONS (5)
  - Diarrhoea [Unknown]
  - Hypotension [Unknown]
  - Neuropathy peripheral [Not Recovered/Not Resolved]
  - Vomiting [Unknown]
  - Acute kidney injury [Unknown]

NARRATIVE: CASE EVENT DATE: 202007
